FAERS Safety Report 9814447 (Version 1)
Quarter: 2014Q1

REPORT INFORMATION
  Report Type: Spontaneous
  Country: MX (occurrence: MX)
  Receive Date: 20140113
  Receipt Date: 20140113
  Transmission Date: 20141002
  Serious: Yes (Life-Threatening)
  Sender: FDA-Public Use
  Company Number: PHHY2014MX002735

PATIENT
  Sex: Female

DRUGS (4)
  1. VISKEN [Suspect]
     Indication: SYNCOPE
     Dosage: 5 MG, DAILY
     Route: 048
     Dates: start: 201001, end: 201202
  2. VISKEN [Suspect]
     Dosage: 5 MG, DAILY
     Route: 048
  3. METOPROLOL [Suspect]
  4. IBUPROFEN [Concomitant]
     Dosage: 200 MG, DAILY

REACTIONS (4)
  - Feeling abnormal [Not Recovered/Not Resolved]
  - Malaise [Not Recovered/Not Resolved]
  - Headache [Not Recovered/Not Resolved]
  - Maternal exposure during pregnancy [Unknown]
